FAERS Safety Report 16995890 (Version 1)
Quarter: 2019Q4

REPORT INFORMATION
  Report Type: Spontaneous
  Country: DK (occurrence: DK)
  Receive Date: 20191105
  Receipt Date: 20191105
  Transmission Date: 20200122
  Serious: Yes (Other)
  Sender: FDA-Public Use
  Company Number: DK-ALLERGAN-1944125US

PATIENT
  Sex: Male

DRUGS (8)
  1. ESCITALOPRAM OXALATE - BP [Suspect]
     Active Substance: ESCITALOPRAM OXALATE
     Indication: DEPRESSION
     Dosage: 15 MG, QD, STYRKE: 15 MG
     Route: 048
     Dates: start: 200907
  2. SEROXAT [Suspect]
     Active Substance: PAROXETINE HYDROCHLORIDE
     Indication: DEPRESSION
     Dosage: 20 MG, QD, STYRKE: 20 MG.
     Route: 048
     Dates: start: 201004
  3. SEROQUEL [Suspect]
     Active Substance: QUETIAPINE FUMARATE
     Indication: PARANOID PERSONALITY DISORDER
     Dosage: STYRKE: 25 MG. DODIS: STIENDE TIL 800 MG.
     Route: 048
     Dates: start: 201111
  4. VALDOXAN [Concomitant]
     Active Substance: AGOMELATINE
     Indication: DEPRESSION
     Dosage: STYRKE: 25 MG. DOSIS: UKENDT.
     Route: 048
  5. EFEXOR DEPOT [Suspect]
     Active Substance: VENLAFAXINE HYDROCHLORIDE
     Indication: OBSESSIVE-COMPULSIVE DISORDER
     Dosage: 150 MG, QD; STYRKE: 150 MG.
     Route: 048
     Dates: start: 2011
  6. ZYPREXA [Suspect]
     Active Substance: OLANZAPINE
     Indication: DELUSION
     Dosage: 15 MG, QD; STYRKE: 15 MG.
     Route: 065
     Dates: start: 201106
  7. ALOPAM [Concomitant]
     Active Substance: OXAZEPAM
     Indication: OBSESSIVE-COMPULSIVE DISORDER
     Dosage: STYRKE: 10 MG. DOSIS: H?JST 3 GANGE DAGLIGT.
     Route: 048
     Dates: start: 2011
  8. LYRICA [Concomitant]
     Active Substance: PREGABALIN
     Indication: OBSESSIVE-COMPULSIVE DISORDER
     Dosage: STYRKE: 150 MG.
     Route: 048
     Dates: start: 2011

REACTIONS (15)
  - Obsessive thoughts [Not Recovered/Not Resolved]
  - Hallucination [Not Recovered/Not Resolved]
  - Vomiting [Not Recovered/Not Resolved]
  - Hypoacusis [Not Recovered/Not Resolved]
  - Delusion [Not Recovered/Not Resolved]
  - Anxiety [Not Recovered/Not Resolved]
  - Cognitive disorder [Not Recovered/Not Resolved]
  - Panic attack [Not Recovered/Not Resolved]
  - Nightmare [Not Recovered/Not Resolved]
  - Dizziness [Not Recovered/Not Resolved]
  - Memory impairment [Not Recovered/Not Resolved]
  - Personality change [Not Recovered/Not Resolved]
  - Nausea [Not Recovered/Not Resolved]
  - Altered state of consciousness [Not Recovered/Not Resolved]
  - Syncope [Unknown]

NARRATIVE: CASE EVENT DATE: 2011
